FAERS Safety Report 8598193-8 (Version None)
Quarter: 2012Q3

REPORT INFORMATION
  Report Type: 
  Country: None (occurrence: None)
  Receive Date: 20120802
  Receipt Date: 20120719
  Transmission Date: 20120928
  Serious: Yes (Disabling)
  Sender: FDA-Public Use
  Company Number: 2012S1000701

PATIENT
  Age: 68 Year
  Sex: Female
  Weight: 63.2 kg

DRUGS (19)
  1. LISINOPRIL [Concomitant]
  2. CLONIDINE HCL [Concomitant]
  3. ASPIRIN [Concomitant]
  4. FOSAMAX [Concomitant]
  5. ALLEGRA-D 12 HOUR [Concomitant]
  6. VITAMIN-MINERAL COMPOUND TAB [Concomitant]
  7. LIVALO [Suspect]
     Indication: BLOOD DISORDER
     Dosage: ;PO
     Route: 048
     Dates: start: 20111128, end: 20111128
  8. PREMARIN [Concomitant]
  9. FISH OIL [Concomitant]
  10. FEXOFENADINE HCL [Concomitant]
  11. ... [Concomitant]
  12. ZOLPIDEM TARTRATE [Concomitant]
  13. NITROGLYCERIN [Concomitant]
  14. FLUTICASONE PROPIONATE [Concomitant]
  15. ALBUTEROL SULFATE [Concomitant]
  16. VITAMIN D [Concomitant]
  17. SYNTHROID [Concomitant]
  18. PNEUMOCOCCAL  VACCINE [Concomitant]
  19. ATENOLOL [Concomitant]

REACTIONS (15)
  - BACK PAIN [None]
  - DEPRESSION [None]
  - DYSPNOEA [None]
  - CHEST PAIN [None]
  - BLOOD PRESSURE INCREASED [None]
  - PLEURAL EFFUSION [None]
  - CATHETERISATION CARDIAC [None]
  - ORAL DISORDER [None]
  - HYPOTENSION [None]
  - ASTHMA [None]
  - CARDIAC STRESS TEST ABNORMAL [None]
  - ANXIETY [None]
  - CONSTIPATION [None]
  - HYPOPNOEA [None]
  - CHEST X-RAY ABNORMAL [None]
